FAERS Safety Report 23571777 (Version 1)
Quarter: 2024Q1

REPORT INFORMATION
  Report Type: Spontaneous
  Country: US (occurrence: None)
  Receive Date: 20240227
  Receipt Date: 20240227
  Transmission Date: 20240409
  Serious: Yes (Disabling)
  Sender: FDA-Public Use
  Company Number: None

PATIENT
  Age: 52 Year
  Sex: Female
  Weight: 76.05 kg

DRUGS (11)
  1. HUMIRA [Suspect]
     Active Substance: ADALIMUMAB
  2. BALSALAZIDE [Concomitant]
     Active Substance: BALSALAZIDE
  3. SERTRALINE [Concomitant]
  4. AZATHIOPRINE [Concomitant]
     Active Substance: AZATHIOPRINE
  5. TOPIRAMATE [Concomitant]
  6. EMGALITY [Concomitant]
     Active Substance: GALCANEZUMAB-GNLM
  7. VITAMIN D [Concomitant]
     Active Substance: VITAMIN D NOS
  8. AG1 Ka^Chava [Concomitant]
  9. Viactiv [Concomitant]
  10. Calcium chew [Concomitant]
  11. Epson Salt baths [Concomitant]

REACTIONS (7)
  - Guillain-Barre syndrome [None]
  - COVID-19 [None]
  - Crohn^s disease [None]
  - Hidradenitis [None]
  - Chronic inflammatory demyelinating polyradiculoneuropathy [None]
  - Drug ineffective [None]
  - Paraesthesia [None]

NARRATIVE: CASE EVENT DATE: 20230817
